FAERS Safety Report 7788178-3 (Version None)
Quarter: 2011Q3

REPORT INFORMATION
  Report Type: 
  Country: None (occurrence: None)
  Receive Date: 20110927
  Receipt Date: 20110921
  Transmission Date: 20111222
  Serious: Yes (Hospitalization, Other)
  Sender: FDA-Public Use
  Company Number: ACO_26401_2011

PATIENT
  Age: 33 Year
  Sex: Female

DRUGS (3)
  1. PRENATAL /00231801/ (ASCORBIC ACID, CALCIUM GLUCONATE, CUPRIC CARBONA [Concomitant]
  2. TYSABRI [Concomitant]
  3. AMPYRA [Suspect]
     Indication: GAIT DISTURBANCE
     Dosage: 10 MG,
     Dates: start: 20110816

REACTIONS (2)
  - CONVULSION [None]
  - DIZZINESS [None]
